FAERS Safety Report 4688070-7 (Version None)
Quarter: 2005Q2

REPORT INFORMATION
  Report Type: 
  Country: None (occurrence: None)
  Receive Date: 20050610
  Receipt Date: 20050608
  Transmission Date: 20051028
  Serious: Yes (Death)
  Sender: FDA-Public Use
  Company Number: US-KINGPHARMUSA00001-K200500778

PATIENT
  Age: 75 Year
  Sex: Female

DRUGS (4)
  1. ALTACE [Suspect]
     Indication: HYPERTENSION
     Dosage: 10 MG, QD
     Route: 048
     Dates: start: 19990101, end: 20050524
  2. GLUCOPHAGE [Concomitant]
     Dates: end: 20050524
  3. ASPIRIN [Concomitant]
     Dates: end: 20050524
  4. CORVASAL [Concomitant]
     Dosage: 6 MG, UNK
     Route: 048
     Dates: end: 20050524

REACTIONS (1)
  - CEREBROVASCULAR ACCIDENT [None]
